FAERS Safety Report 10700420 (Version 1)
Quarter: 2015Q1

REPORT INFORMATION
  Report Type: Spontaneous
  Country: FR (occurrence: FR)
  Receive Date: 20150109
  Receipt Date: 20150109
  Transmission Date: 20150721
  Serious: Yes (Hospitalization)
  Sender: FDA-Public Use
  Company Number: FR-SA-2015SA001005

PATIENT
  Age: 47 Year
  Sex: Male

DRUGS (10)
  1. HUMIRA [Suspect]
     Active Substance: ADALIMUMAB
     Indication: SYNOVITIS
     Route: 058
     Dates: start: 20130306, end: 20140621
  2. ADALIMUMAB [Concomitant]
     Active Substance: ADALIMUMAB
     Dates: start: 20140621
  3. MOPRAL [Concomitant]
     Active Substance: OMEPRAZOLE SODIUM
  4. ARAVA [Suspect]
     Active Substance: LEFLUNOMIDE
     Route: 048
     Dates: start: 20120718, end: 201407
  5. HUMIRA [Suspect]
     Active Substance: ADALIMUMAB
     Indication: ARTHRALGIA
     Route: 058
     Dates: start: 20130306, end: 20140621
  6. TRAVATAN [Concomitant]
     Active Substance: TRAVOPROST
     Indication: GLAUCOMA
  7. SEROPRAM [Concomitant]
     Active Substance: CITALOPRAM HYDROBROMIDE
     Indication: DEPRESSION
  8. DIPHTHERIA-TETANUS-ACELLULAR PERTUSSIS [Suspect]
     Active Substance: DIPHTHERIA AND TETANUS TOXOIDS AND PERTUSSIS VACCINE
     Route: 030
     Dates: start: 20140614, end: 20140614
  9. METHOTREXATE [Concomitant]
     Active Substance: METHOTREXATE
  10. CHRONO-INDOCID [Concomitant]
     Active Substance: INDOMETHACIN
     Dates: end: 2013

REACTIONS (2)
  - Antinuclear antibody positive [Not Recovered/Not Resolved]
  - Meningitis aseptic [Recovering/Resolving]

NARRATIVE: CASE EVENT DATE: 20140622
